FAERS Safety Report 7794092-X (Version None)
Quarter: 2011Q4

REPORT INFORMATION
  Report Type: 
  Country: None (occurrence: None)
  Receive Date: 20111004
  Receipt Date: 20100528
  Transmission Date: 20120403
  Serious: Yes (Hospitalization)
  Sender: FDA-Public Use
  Company Number: US-JNJFOC-20110909305

PATIENT
  Sex: Male

DRUGS (3)
  1. CONCENTRATED TYLENOL INFANT DROPS [Suspect]
     Route: 065
  2. CONCENTRATED TYLENOL INFANT DROPS [Suspect]
     Indication: PYREXIA
     Route: 065
  3. CHILDREN'S MOTRIN [Suspect]
     Indication: PYREXIA
     Route: 065

REACTIONS (4)
  - TRANSMISSION OF AN INFECTIOUS AGENT VIA A MEDICINAL PRODUCT [None]
  - PYREXIA [None]
  - DRUG INEFFECTIVE [None]
  - PNEUMONIA [None]
